FAERS Safety Report 12172899 (Version 1)
Quarter: 2016Q1

REPORT INFORMATION
  Report Type: Spontaneous
  Country: US (occurrence: US)
  Receive Date: 20160311
  Receipt Date: 20160311
  Transmission Date: 20160526
  Serious: Yes (Hospitalization)
  Sender: FDA-Public Use
  Company Number: US-SA-2016SA043615

PATIENT
  Age: 53 Year
  Sex: Female

DRUGS (3)
  1. BENADRYL [Concomitant]
     Active Substance: DIPHENHYDRAMINE HYDROCHLORIDE
  2. NITRO [Concomitant]
     Active Substance: NITROGLYCERIN
     Dates: start: 2016
  3. APIDRA [Suspect]
     Active Substance: INSULIN GLULISINE
     Indication: DIABETES MELLITUS
     Dosage: VIAL
     Route: 065
     Dates: start: 2009

REACTIONS (13)
  - Headache [Unknown]
  - Arterial disorder [Unknown]
  - Chest pain [Recovered/Resolved]
  - Chest discomfort [Unknown]
  - Chest pain [Unknown]
  - Hyperhidrosis [Unknown]
  - Salivary hypersecretion [Unknown]
  - Throat tightness [Unknown]
  - Feeling abnormal [Unknown]
  - Myocardial infarction [Unknown]
  - Weight decreased [Unknown]
  - Vomiting [Unknown]
  - Ill-defined disorder [Unknown]

NARRATIVE: CASE EVENT DATE: 201602
